FAERS Safety Report 25945439 (Version 1)
Quarter: 2025Q4

REPORT INFORMATION
  Report Type: Spontaneous
  Country: US (occurrence: None)
  Receive Date: 20251021
  Receipt Date: 20251021
  Transmission Date: 20260117
  Serious: No
  Sender: FDA-CTU
  Company Number: None

PATIENT

DRUGS (3)
  1. BOSULIF [Suspect]
     Active Substance: BOSUTINIB MONOHYDRATE
  2. OMEPRAZOLE [Suspect]
     Active Substance: OMEPRAZOLE
  3. PEPCID [Suspect]
     Active Substance: FAMOTIDINE

REACTIONS (2)
  - Drug ineffective [None]
  - Therapeutic product effect delayed [None]
